FAERS Safety Report 22626859 (Version 1)
Quarter: 2023Q2

REPORT INFORMATION
  Report Type: Report from Study
  Country: NL (occurrence: NL)
  Receive Date: 20230622
  Receipt Date: 20230622
  Transmission Date: 20230722
  Serious: Yes (Hospitalization)
  Sender: FDA-Public Use
  Company Number: NL-ABBVIE-5299335

PATIENT
  Sex: Female

DRUGS (3)
  1. CARBIDOPA\LEVODOPA [Suspect]
     Active Substance: CARBIDOPA\LEVODOPA
     Indication: Parkinson^s disease
     Dosage: MD: 8.5 ML, CD: 1.1 ML, ED: 2.0 ML
     Route: 050
  2. CARBIDOPA\LEVODOPA [Suspect]
     Active Substance: CARBIDOPA\LEVODOPA
     Route: 050
     Dates: start: 20181112
  3. CARBIDOPA\LEVODOPA [Suspect]
     Active Substance: CARBIDOPA\LEVODOPA
     Dosage: MD: 8.5 ML, CD: 1.2 ML, ED: 2.0 ML
     Route: 050

REACTIONS (4)
  - Joint dislocation [Recovered/Resolved]
  - Balance disorder [Not Recovered/Not Resolved]
  - Nocturia [Not Recovered/Not Resolved]
  - Fall [Not Recovered/Not Resolved]

NARRATIVE: CASE EVENT DATE: 20230601
